FAERS Safety Report 4354891-3 (Version None)
Quarter: 2004Q2

REPORT INFORMATION
  Report Type: 
  Country: None (occurrence: None)
  Receive Date: 20040507
  Receipt Date: 20040430
  Transmission Date: 20050107
  Serious: Yes (Hospitalization)
  Sender: FDA-Public Use
  Company Number: US-MERCK-0405USA00060

PATIENT
  Age: 82 Year
  Sex: Male

DRUGS (4)
  1. ATENOLOL [Concomitant]
     Route: 065
  2. PLAVIX [Concomitant]
     Route: 065
  3. HYZAAR [Concomitant]
     Route: 048
  4. ZOCOR [Suspect]
     Indication: HYPERCHOLESTEROLAEMIA
     Route: 048
     Dates: start: 19960101, end: 20040423

REACTIONS (4)
  - ARTHRALGIA [None]
  - CAROTID ARTERY OCCLUSION [None]
  - MUSCLE CRAMP [None]
  - PAIN IN EXTREMITY [None]
